FAERS Safety Report 14329984 (Version 1)
Quarter: 2017Q4

REPORT INFORMATION
  Report Type: Report from Study
  Country: US (occurrence: US)
  Receive Date: 20171227
  Receipt Date: 20171227
  Transmission Date: 20180321
  Serious: Yes (Other)
  Sender: FDA-Public Use
  Company Number: US-GILEAD-2017-0312080

PATIENT
  Age: 56 Year
  Sex: Male

DRUGS (12)
  1. CALCIUM W/MAGNESIUM [Concomitant]
     Active Substance: CALCIUM\MAGNESIUM
  2. FISH OIL [Concomitant]
     Active Substance: FISH OIL
  3. LASIX [Concomitant]
     Active Substance: FUROSEMIDE
  4. MULTIVITAMIN                       /00097801/ [Concomitant]
     Active Substance: VITAMINS
  5. VITAMIN B12 [Concomitant]
     Active Substance: CYANOCOBALAMIN
  6. MILK THISTLE [Concomitant]
     Active Substance: DIETARY SUPPLEMENT\HERBALS\MILK THISTLE
  7. ALLOPURINOL. [Concomitant]
     Active Substance: ALLOPURINOL
  8. VITAMIN E                          /00110501/ [Concomitant]
     Active Substance: TOCOPHEROL
  9. AMBRISENTAN [Suspect]
     Active Substance: AMBRISENTAN
     Indication: PULMONARY HYPERTENSION
     Dosage: 5 MG, QD
     Route: 065
     Dates: start: 20131129
  10. ECHINACEA                          /01323501/ [Concomitant]
     Active Substance: ECHINACEA PURPUREA
  11. VITAMIN B1 [Concomitant]
     Active Substance: THIAMINE HYDROCHLORIDE
  12. PROPRANOLOL [Concomitant]
     Active Substance: PROPRANOLOL HYDROCHLORIDE

REACTIONS (1)
  - Macular degeneration [Not Recovered/Not Resolved]

NARRATIVE: CASE EVENT DATE: 201712
